FAERS Safety Report 19165711 (Version 1)
Quarter: 2021Q2

REPORT INFORMATION
  Report Type: Spontaneous
  Country: US (occurrence: US)
  Receive Date: 20210422
  Receipt Date: 20210422
  Transmission Date: 20210717
  Serious: No
  Sender: FDA-Public Use
  Company Number: US-ASTRAZENECA-2021A288102

PATIENT
  Sex: Female
  Weight: 59 kg

DRUGS (1)
  1. SEROQUEL [Suspect]
     Active Substance: QUETIAPINE FUMARATE
     Indication: AGGRESSION
     Route: 048
     Dates: start: 19940825

REACTIONS (13)
  - Chills [Unknown]
  - Aggression [Unknown]
  - Feeling cold [Unknown]
  - COVID-19 [Unknown]
  - Fatigue [Unknown]
  - Weight increased [Unknown]
  - Cyanosis [Unknown]
  - Abnormal behaviour [Unknown]
  - Anxiety [Unknown]
  - Pallor [Unknown]
  - Stress [Unknown]
  - Peripheral coldness [Unknown]
  - Hypohidrosis [Unknown]
